FAERS Safety Report 9459657 (Version 4)
Quarter: 2013Q4

REPORT INFORMATION
  Report Type: Spontaneous
  Country: JP (occurrence: JP)
  Receive Date: 20130815
  Receipt Date: 20131230
  Transmission Date: 20140711
  Serious: Yes (Death, Hospitalization)
  Sender: FDA-Public Use
  Company Number: JP-JNJFOC-20130806032

PATIENT
  Age: 76 Year
  Sex: Female
  Weight: 33 kg

DRUGS (10)
  1. SIMPONI [Suspect]
     Indication: RHEUMATOID ARTHRITIS
     Route: 058
     Dates: start: 20111125
  2. PROGRAF [Suspect]
     Indication: RHEUMATOID ARTHRITIS
     Route: 065
     Dates: start: 20060302
  3. PREDONINE [Suspect]
     Indication: RHEUMATOID ARTHRITIS
     Route: 048
     Dates: start: 20071022
  4. CELECOX [Concomitant]
     Indication: RHEUMATOID ARTHRITIS
     Dosage: 2 DF
     Route: 048
     Dates: start: 20070705
  5. BONALON [Concomitant]
     Indication: OSTEOPOROSIS
     Route: 048
  6. EDIROL [Concomitant]
     Indication: OSTEOPOROSIS
     Route: 048
  7. TOWARAT [Concomitant]
     Indication: HYPERTENSION
     Dosage: 1 DF
     Route: 048
     Dates: start: 20050922
  8. PREDONINE [Concomitant]
     Indication: RHEUMATOID ARTHRITIS
     Route: 048
  9. JANUVIA [Concomitant]
     Indication: DIABETES MELLITUS
     Dosage: 1 DF
     Route: 048
     Dates: start: 20130226
  10. ISCOTIN [Concomitant]
     Indication: PROPHYLAXIS
     Dosage: 1 DF
     Route: 048
     Dates: start: 20050701

REACTIONS (1)
  - Atypical mycobacterial infection [Fatal]
